FAERS Safety Report 7016927-0 (Version None)
Quarter: 2010Q3

REPORT INFORMATION
  Report Type: 
  Country: None (occurrence: None)
  Receive Date: 20100927
  Receipt Date: 20100916
  Transmission Date: 20110219
  Serious: Yes (Other)
  Sender: FDA-Public Use
  Company Number: ZA-PFIZER INC-2010117758

PATIENT
  Age: 56 Year
  Sex: Female

DRUGS (2)
  1. LYRICA [Suspect]
     Indication: PAIN IN EXTREMITY
     Dosage: 75 MG, 1X/DAY
     Route: 048
     Dates: start: 20100701
  2. LYRICA [Suspect]
     Dosage: 150 MG, 2X/DAY
     Route: 048

REACTIONS (3)
  - DIZZINESS [None]
  - DYSARTHRIA [None]
  - DYSPHEMIA [None]
